FAERS Safety Report 6673790-5 (Version None)
Quarter: 2010Q2

REPORT INFORMATION
  Report Type: 
  Country: None (occurrence: None)
  Receive Date: 20100407
  Receipt Date: 20100323
  Transmission Date: 20101027
  Serious: Yes (Hospitalization, Other)
  Sender: FDA-Public Use
  Company Number: AUR-APL-2010-00970

PATIENT
  Age: 49 Year
  Sex: Male

DRUGS (5)
  1. MIRTAZAPINE [Suspect]
     Indication: DEPRESSION
     Dosage: 30MG-BEDTIME-UNKNOWN
  2. QUETIAPINE [Suspect]
     Indication: DEPRESSION
     Dosage: 50MG-BEDTIME-UNKNOWN
  3. CLOZAPINE [Suspect]
     Dosage: 150MG-BID-UNKNOWN
  4. DIVALPROEX SODIUM [Suspect]
     Dosage: 1500MG-BID-UNKNOWN
  5. LEVOTHYROXINE [Concomitant]

REACTIONS (20)
  - ATAXIA [None]
  - ATELECTASIS [None]
  - BACK PAIN [None]
  - BLOOD PRESSURE FLUCTUATION [None]
  - DEPRESSED LEVEL OF CONSCIOUSNESS [None]
  - DIET REFUSAL [None]
  - FALL [None]
  - HAEMATOCRIT DECREASED [None]
  - INCOHERENT [None]
  - LUNG INFILTRATION [None]
  - NEUROLEPTIC MALIGNANT SYNDROME [None]
  - ORTHOSTATIC HYPOTENSION [None]
  - PLEURAL EFFUSION [None]
  - PLEURAL FIBROSIS [None]
  - PULMONARY OEDEMA [None]
  - RED BLOOD CELL COUNT DECREASED [None]
  - REFUSAL OF TREATMENT BY PATIENT [None]
  - TACHYCARDIA [None]
  - THERAPEUTIC RESPONSE DECREASED [None]
  - TREATMENT FAILURE [None]
